FAERS Safety Report 6179978-4 (Version None)
Quarter: 2009Q2

REPORT INFORMATION
  Report Type: 
  Country: None (occurrence: None)
  Receive Date: 20090501
  Receipt Date: 20090414
  Transmission Date: 20091009
  Serious: Yes (Hospitalization)
  Sender: FDA-Public Use
  Company Number: ADE# 09-073DPR

PATIENT
  Age: 87 Year
  Sex: Male

DRUGS (1)
  1. DIGOXIN [Suspect]
     Indication: CARDIAC DISORDER
     Dosage: FOR A FEW YEARS

REACTIONS (2)
  - CHEST PAIN [None]
  - CORONARY ARTERIAL STENT INSERTION [None]
